FAERS Safety Report 4772145-8 (Version None)
Quarter: 2005Q3

REPORT INFORMATION
  Report Type: 
  Country: None (occurrence: None)
  Receive Date: 20050919
  Receipt Date: 20040811
  Transmission Date: 20060218
  Serious: No
  Sender: FDA-Public Use
  Company Number: US-BRISTOL-MYERS SQUIBB COMPANY-12668596

PATIENT
  Age: 83 Year
  Sex: Male
  Weight: 101 kg

DRUGS (9)
  1. DEFINITY [Suspect]
     Indication: ECHOCARDIOGRAM
     Dosage: 3CC, 1CC, 1CC
     Route: 040
     Dates: start: 20040811, end: 20040811
  2. COUMADIN [Concomitant]
  3. LASIX [Concomitant]
  4. POTASSIUM [Concomitant]
  5. TAGAMET [Concomitant]
  6. HYDRALAZINE [Concomitant]
  7. ASPIRIN [Concomitant]
  8. LOVASTATIN [Concomitant]
  9. METOPROLOL [Concomitant]

REACTIONS (1)
  - DYSPNOEA [None]
